FAERS Safety Report 14730310 (Version 1)
Quarter: 2018Q2

REPORT INFORMATION
  Report Type: Spontaneous
  Country: PL (occurrence: PL)
  Receive Date: 20180406
  Receipt Date: 20180406
  Transmission Date: 20180711
  Serious: Yes (Other)
  Sender: FDA-Public Use
  Company Number: PL-TEVA-2018-PL-877879

PATIENT
  Age: 34 Year
  Sex: Female

DRUGS (2)
  1. SEASONIQUE [Suspect]
     Active Substance: ETHINYL ESTRADIOL\LEVONORGESTREL
     Indication: CONTRACEPTION
  2. SEASONIQUE [Suspect]
     Active Substance: ETHINYL ESTRADIOL\LEVONORGESTREL
     Indication: ENDOMETRIOSIS
     Route: 065
     Dates: start: 20171224, end: 20180312

REACTIONS (10)
  - Blepharospasm [Not Recovered/Not Resolved]
  - Gastrooesophageal reflux disease [Not Recovered/Not Resolved]
  - Eye pain [Not Recovered/Not Resolved]
  - Drug dose omission [Unknown]
  - Arrhythmia [Not Recovered/Not Resolved]
  - Vaginal haemorrhage [Recovered/Resolved]
  - Hypoaesthesia [Not Recovered/Not Resolved]
  - Irritability [Not Recovered/Not Resolved]
  - Visual impairment [Recovered/Resolved]
  - Palpitations [Recovered/Resolved]

NARRATIVE: CASE EVENT DATE: 20180107
